FAERS Safety Report 23938469 (Version 1)
Quarter: 2024Q2

REPORT INFORMATION
  Report Type: Spontaneous
  Country: ZA (occurrence: ZA)
  Receive Date: 20240604
  Receipt Date: 20240604
  Transmission Date: 20240716
  Serious: Yes (Other)
  Sender: FDA-Public Use
  Company Number: ZA-PFIZER INC-PV202400071718

PATIENT
  Age: 44 Year
  Sex: Male

DRUGS (6)
  1. SULFASALAZINE [Suspect]
     Active Substance: SULFASALAZINE
     Dosage: 1000 MG, 2X/DAY
     Dates: start: 20091201
  2. ARCOXIA [Suspect]
     Active Substance: ETORICOXIB
     Dosage: 90 MG, DAILY
     Dates: start: 20100101
  3. DICLOFENAC SODIUM [Suspect]
     Active Substance: DICLOFENAC\DICLOFENAC SODIUM
     Dosage: 100 MG, 2X/DAY
  4. CELEBREX [Suspect]
     Active Substance: CELECOXIB
     Dosage: UNK
     Dates: start: 20090101, end: 20100101
  5. HUMIRA [Suspect]
     Active Substance: ADALIMUMAB
     Dosage: 40 MG EVERY OTHER WEEK
     Dates: start: 20130719
  6. DICLOFENAC SODIUM [Suspect]
     Active Substance: DICLOFENAC\DICLOFENAC SODIUM
     Dosage: UNK

REACTIONS (7)
  - Ankylosing spondylitis [Unknown]
  - Glaucoma [Unknown]
  - Blood creatinine decreased [Recovered/Resolved]
  - Hypertension [Unknown]
  - Osteoarthritis [Unknown]
  - Benign prostatic hyperplasia [Unknown]
  - White blood cell count increased [Recovered/Resolved]

NARRATIVE: CASE EVENT DATE: 20100101
